FAERS Safety Report 8437264-3 (Version None)
Quarter: 2012Q2

REPORT INFORMATION
  Report Type: 
  Country: None (occurrence: None)
  Receive Date: 20120614
  Receipt Date: 20120301
  Transmission Date: 20120825
  Serious: No
  Sender: FDA-Public Use
  Company Number: US-AMGEN-USASP2011020509

PATIENT
  Age: 68 Year
  Sex: Male

DRUGS (3)
  1. VITAMIN D [Concomitant]
  2. CALCIUM [Concomitant]
  3. XGEVA [Suspect]
     Indication: METASTASES TO BONE
     Dosage: 120 MG, Q4WK
     Dates: start: 20110324

REACTIONS (3)
  - PAIN IN JAW [None]
  - HYPOAESTHESIA [None]
  - ARTIFICIAL CROWN PROCEDURE [None]
